FAERS Safety Report 6184774-8 (Version None)
Quarter: 2009Q2

REPORT INFORMATION
  Report Type: 
  Country: None (occurrence: None)
  Receive Date: 20090508
  Receipt Date: 20090504
  Transmission Date: 20091009
  Serious: Yes (Hospitalization)
  Sender: FDA-Public Use
  Company Number: US-PFIZER INC-2009208785

PATIENT

DRUGS (1)
  1. LIPITOR [Suspect]
     Dosage: 10 MG, UNK

REACTIONS (1)
  - CEREBROVASCULAR ACCIDENT [None]
